FAERS Safety Report 19944500 (Version 4)
Quarter: 2022Q4

REPORT INFORMATION
  Report Type: Report from Study
  Country: AR (occurrence: AR)
  Receive Date: 20211011
  Receipt Date: 20221031
  Transmission Date: 20230113
  Serious: Yes (Hospitalization)
  Sender: FDA-Public Use
  Company Number: AR-002147023-NVSC2021AR196200

PATIENT

DRUGS (3)
  1. RUXOLITINIB [Suspect]
     Active Substance: RUXOLITINIB
     Indication: Polycythaemia vera
     Dosage: UNK UNK, BID
     Route: 048
     Dates: start: 20160804, end: 20161029
  2. RUXOLITINIB [Suspect]
     Active Substance: RUXOLITINIB
     Dosage: 15 MG
     Route: 048
     Dates: start: 20160804
  3. RUXOLITINIB [Suspect]
     Active Substance: RUXOLITINIB
     Dosage: 20 MG, QD
     Route: 048
     Dates: start: 20160804, end: 20220819

REACTIONS (7)
  - Haemorrhage [Unknown]
  - Coma [Unknown]
  - Memory impairment [Unknown]
  - Blood uric acid increased [Unknown]
  - Splenomegaly [Not Recovered/Not Resolved]
  - Splenitis [Unknown]
  - Product prescribing error [Unknown]
